FAERS Safety Report 15118361 (Version 1)
Quarter: 2018Q3

REPORT INFORMATION
  Report Type: Spontaneous
  Country: None (occurrence: FI)
  Receive Date: 20180708
  Receipt Date: 20180708
  Transmission Date: 20181010
  Serious: Yes (Other)
  Sender: FDA-Public Use
  Company Number: FI-LABORATOIRE HRA PHARMA-2051546

PATIENT
  Sex: Female

DRUGS (2)
  1. ELLA [Suspect]
     Active Substance: ULIPRISTAL ACETATE
     Indication: PRODUCT USED FOR UNKNOWN INDICATION
     Route: 048
  2. LEVONORGESTREL. [Suspect]
     Active Substance: LEVONORGESTREL

REACTIONS (1)
  - Arrhythmia [Unknown]
